FAERS Safety Report 24536158 (Version 1)
Quarter: 2024Q4

REPORT INFORMATION
  Report Type: Other
  Country: CA (occurrence: CA)
  Receive Date: 20241022
  Receipt Date: 20241022
  Transmission Date: 20250114
  Serious: Yes (Other)
  Sender: EMERGENT BIOSOLUTIONS
  Company Number: CA-Emergent Biosolutions-24000163

PATIENT
  Age: 8 Year
  Sex: Male

DRUGS (1)
  1. NARCAN [Suspect]
     Active Substance: NALOXONE HYDROCHLORIDE
     Indication: Product used for unknown indication
     Dosage: UNK, SINGLE DOSE
     Route: 045

REACTIONS (1)
  - Epistaxis [Recovered/Resolved]
